FAERS Safety Report 8173396-5 (Version None)
Quarter: 2012Q1

REPORT INFORMATION
  Report Type: 
  Country: None (occurrence: None)
  Receive Date: 20120229
  Receipt Date: 20120224
  Transmission Date: 20120608
  Serious: Yes (Death, Other)
  Sender: FDA-Public Use
  Company Number: DE-ASTELLAS-2012EU001472

PATIENT
  Sex: Female
  Weight: 65 kg

DRUGS (1)
  1. MICAFUNGIN INJECTION [Suspect]
     Dosage: UNK
     Route: 065

REACTIONS (3)
  - URINARY TRACT INFECTION [None]
  - ABDOMINAL WOUND DEHISCENCE [None]
  - MULTI-ORGAN FAILURE [None]
